FAERS Safety Report 4368536-X (Version None)
Quarter: 2004Q2

REPORT INFORMATION
  Report Type: 
  Country: None (occurrence: None)
  Receive Date: 20040602
  Receipt Date: 20040316
  Transmission Date: 20050107
  Serious: No
  Sender: FDA-Public Use
  Company Number: US-GLAXOSMITHKLINE-A0502997A

PATIENT
  Age: 6 Year
  Sex: Female

DRUGS (4)
  1. AUGMENTIN ES-600 [Suspect]
     Indication: ILL-DEFINED DISORDER
     Dosage: 1TSP TWICE PER DAY
     Route: 048
     Dates: start: 20040126, end: 20040218
  2. CLARITIN [Concomitant]
  3. NASONEX [Concomitant]
  4. MULTI-VITAMIN [Concomitant]

REACTIONS (1)
  - TOOTH DISCOLOURATION [None]
